FAERS Safety Report 7683018-5 (Version None)
Quarter: 2011Q3

REPORT INFORMATION
  Report Type: 
  Country: None (occurrence: None)
  Receive Date: 20110815
  Receipt Date: 20110808
  Transmission Date: 20111222
  Serious: Yes (Hospitalization, Other)
  Sender: FDA-Public Use
  Company Number: US-TEVA-295434USA

PATIENT
  Age: 49 Year
  Sex: Male

DRUGS (1)
  1. ZOLPIDEM [Suspect]
     Indication: INSOMNIA

REACTIONS (6)
  - GUN SHOT WOUND [None]
  - BLINDNESS [None]
  - INTRACRANIAL HAEMATOMA [None]
  - INTENTIONAL SELF-INJURY [None]
  - HAEMORRHAGE INTRACRANIAL [None]
  - PARASOMNIA [None]
